FAERS Safety Report 14410688 (Version 2)
Quarter: 2018Q1

REPORT INFORMATION
  Report Type: Spontaneous
  Country: IQ (occurrence: IQ)
  Receive Date: 20180119
  Receipt Date: 20180219
  Transmission Date: 20180509
  Serious: Yes (Hospitalization, Other)
  Sender: FDA-Public Use
  Company Number: PHHY2018IQ008139

PATIENT
  Age: 45 Year
  Sex: Female

DRUGS (2)
  1. EXEMESTANE. [Concomitant]
     Active Substance: EXEMESTANE
     Indication: PRODUCT USED FOR UNKNOWN INDICATION
     Route: 065
  2. AFINITOR [Suspect]
     Active Substance: EVEROLIMUS
     Indication: BREAST CANCER
     Dosage: 10 MG, QD
     Route: 048

REACTIONS (14)
  - Pneumonia [Recovered/Resolved]
  - Wheezing [Unknown]
  - Pleural effusion [Unknown]
  - Cardiac dysfunction [Recovering/Resolving]
  - Influenza like illness [Recovered/Resolved]
  - Ascites [Unknown]
  - Orthopnoea [Unknown]
  - Cough [Recovered/Resolved]
  - Ejection fraction abnormal [Unknown]
  - Dyspnoea [Recovered/Resolved]
  - Oropharyngeal pain [Recovered/Resolved]
  - Arrhythmia [Unknown]
  - Hypotension [Unknown]
  - Pyrexia [Recovered/Resolved]
